FAERS Safety Report 14624877 (Version 2)
Quarter: 2018Q2

REPORT INFORMATION
  Report Type: Spontaneous
  Country: US (occurrence: US)
  Receive Date: 20180312
  Receipt Date: 20180613
  Transmission Date: 20180711
  Serious: No
  Sender: FDA-Public Use
  Company Number: US-PFIZER INC-2018098370

PATIENT
  Age: 58 Year
  Sex: Male

DRUGS (1)
  1. SUTENT [Suspect]
     Active Substance: SUNITINIB MALATE
     Indication: RENAL CANCER
     Dosage: 37.5 MG, CYCLIC, (DAILY X 14)
     Route: 048
     Dates: start: 20180215, end: 20180222

REACTIONS (2)
  - Chromaturia [Unknown]
  - Skin discolouration [Unknown]

NARRATIVE: CASE EVENT DATE: 201802
